FAERS Safety Report 15418662 (Version 1)
Quarter: 2018Q3

REPORT INFORMATION
  Report Type: Spontaneous
  Country: US (occurrence: US)
  Receive Date: 20180924
  Receipt Date: 20180924
  Transmission Date: 20181010
  Serious: Yes (Hospitalization, Other)
  Sender: FDA-Public Use
  Company Number: US-TORRENT-00006908

PATIENT
  Age: 24 Year
  Sex: Female

DRUGS (4)
  1. PALIPERIDONE. [Suspect]
     Active Substance: PALIPERIDONE
     Indication: PRADER-WILLI SYNDROME
     Dosage: TOTAL OF 3 PALIPERIDONE INJECTIONS
  2. RISPERIDONE. [Suspect]
     Active Substance: RISPERIDONE
     Indication: PRADER-WILLI SYNDROME
  3. OXCARBAZEPINE. [Suspect]
     Active Substance: OXCARBAZEPINE
     Indication: PRADER-WILLI SYNDROME
     Dosage: 600 MG/D
  4. LORAZEPAM. [Concomitant]
     Active Substance: LORAZEPAM
     Indication: CATATONIA
     Route: 042

REACTIONS (6)
  - Bradycardia [Unknown]
  - Hyponatraemia [Recovered/Resolved]
  - Agitation [Unknown]
  - Fall [Unknown]
  - Pancytopenia [Unknown]
  - Haemodynamic instability [Recovered/Resolved]
